FAERS Safety Report 15889323 (Version 1)
Quarter: 2019Q1

REPORT INFORMATION
  Report Type: Spontaneous
  Country: CA (occurrence: CA)
  Receive Date: 20190130
  Receipt Date: 20190130
  Transmission Date: 20190417
  Serious: Yes (Other)
  Sender: FDA-Public Use
  Company Number: CA-BAUSCH-BL-2019-002628

PATIENT
  Age: 37 Year
  Sex: Female

DRUGS (7)
  1. 5-ASA [Concomitant]
     Active Substance: MESALAMINE
     Indication: PRODUCT USED FOR UNKNOWN INDICATION
     Dosage: ENTERIC-COATED
     Route: 065
  2. LYRICA [Suspect]
     Active Substance: PREGABALIN
     Indication: MULTIPLE SCLEROSIS
     Route: 065
  3. VEDOLIZUMAB [Suspect]
     Active Substance: VEDOLIZUMAB
     Indication: COLITIS ULCERATIVE
     Route: 042
  4. MEZAVANT [Concomitant]
     Active Substance: MESALAMINE
     Indication: PRODUCT USED FOR UNKNOWN INDICATION
     Dosage: TABLET (DELAYED AND EXTENDED RELEASE)
     Route: 065
  5. NORTRIPTYLINE HYDROCHLORIDE. [Suspect]
     Active Substance: NORTRIPTYLINE HYDROCHLORIDE
     Indication: MULTIPLE SCLEROSIS
     Route: 065
  6. COPAXONE [Concomitant]
     Active Substance: GLATIRAMER ACETATE
     Indication: MULTIPLE SCLEROSIS
     Dosage: POWDER FOR SOLUTION SUBCUTANEOUS
     Route: 058
  7. WELLBUTRIN [Suspect]
     Active Substance: BUPROPION HYDROCHLORIDE
     Indication: PRODUCT USED FOR UNKNOWN INDICATION
     Dosage: EXTENDED RELEASE
     Route: 065

REACTIONS (11)
  - Discomfort [Not Recovered/Not Resolved]
  - Somnolence [Not Recovered/Not Resolved]
  - Burning sensation [Not Recovered/Not Resolved]
  - Multiple sclerosis [Not Recovered/Not Resolved]
  - Pharyngeal paraesthesia [Not Recovered/Not Resolved]
  - Therapy partial responder [Not Recovered/Not Resolved]
  - Blood pressure increased [Not Recovered/Not Resolved]
  - Fatigue [Not Recovered/Not Resolved]
  - Poor venous access [Not Recovered/Not Resolved]
  - Off label use [Not Recovered/Not Resolved]
  - Colitis ulcerative [Not Recovered/Not Resolved]
